FAERS Safety Report 7459456-2 (Version None)
Quarter: 2011Q2

REPORT INFORMATION
  Report Type: 
  Country: None (occurrence: None)
  Receive Date: 20110504
  Receipt Date: 20110504
  Transmission Date: 20111010
  Serious: No
  Sender: FDA-Public Use
  Company Number: None

PATIENT
  Age: 58 Year
  Sex: Male
  Weight: 63.5036 kg

DRUGS (1)
  1. SUBOXONE [Suspect]
     Indication: DRUG WITHDRAWAL MAINTENANCE THERAPY
     Dosage: 8MG 1PER DAY SL
     Route: 060
     Dates: start: 20110301, end: 20110501

REACTIONS (2)
  - APPLICATION SITE PAIN [None]
  - PRODUCT FORMULATION ISSUE [None]
